APPROVED DRUG PRODUCT: CEFEPIME AND DEXTROSE IN DUPLEX CONTAINER
Active Ingredient: CEFEPIME HYDROCHLORIDE
Strength: EQ 1GM BASE/VIAL
Dosage Form/Route: INJECTABLE;INJECTION
Application: N050821 | Product #001
Applicant: B BRAUN MEDICAL INC
Approved: May 6, 2010 | RLD: Yes | RS: Yes | Type: RX